FAERS Safety Report 20556433 (Version 1)
Quarter: 2022Q1

REPORT INFORMATION
  Report Type: Spontaneous
  Country: US (occurrence: US)
  Receive Date: 20220305
  Receipt Date: 20220305
  Transmission Date: 20220423
  Serious: Yes (Death)
  Sender: FDA-Public Use
  Company Number: US-JNJFOC-20220310286

PATIENT
  Age: 6 Decade
  Sex: Male

DRUGS (1)
  1. BALVERSA [Suspect]
     Active Substance: ERDAFITINIB
     Indication: Product used for unknown indication
     Dosage: LAST KNOWN DATE OF DRUG ADMINISTRATION: 07-JUN-2021
     Route: 048

REACTIONS (1)
  - Death [Fatal]
